FAERS Safety Report 8202671-0 (Version None)
Quarter: 2012Q1

REPORT INFORMATION
  Report Type: 
  Country: None (occurrence: None)
  Receive Date: 20120312
  Receipt Date: 20120305
  Transmission Date: 20120608
  Serious: Yes (Hospitalization)
  Sender: FDA-Public Use
  Company Number: CA-ABBOTT-12P-028-0911876-00

PATIENT
  Age: 36 Year
  Sex: Male

DRUGS (3)
  1. ADALIMUMAB [Suspect]
     Route: 058
     Dates: start: 20100504, end: 20100504
  2. ADALIMUMAB [Suspect]
     Indication: CROHN'S DISEASE
     Dosage: INDUCTION DOSE
     Route: 058
     Dates: start: 20100420, end: 20100420
  3. ADALIMUMAB [Suspect]
     Dosage: MAINTENANCE DOSE
     Route: 058

REACTIONS (2)
  - DERMATOMYOSITIS [None]
  - FASCIITIS [None]
